FAERS Safety Report 15201914 (Version 2)
Quarter: 2018Q3

REPORT INFORMATION
  Report Type: Report from Study
  Country: MX (occurrence: MX)
  Receive Date: 20180726
  Receipt Date: 20180810
  Transmission Date: 20181010
  Serious: No
  Sender: FDA-Public Use
  Company Number: PHHY2018MX054823

PATIENT
  Age: 57 Year
  Sex: Female
  Weight: 80 kg

DRUGS (7)
  1. LOPRESSOR [Suspect]
     Active Substance: METOPROLOL TARTRATE
     Indication: CARDIAC DISORDER
     Dosage: 1 DF, QD 10 YEARS AGO
     Route: 048
  2. ADALAT [Suspect]
     Active Substance: NIFEDIPINE
     Indication: CARDIOVASCULAR DISORDER
     Dosage: 2 DF, QD
     Route: 048
  3. DABEX [Concomitant]
     Indication: DIABETES MELLITUS
     Dosage: EXTENDED RELEASE
     Route: 065
  4. CO?DIOVAN [Suspect]
     Active Substance: HYDROCHLOROTHIAZIDE\VALSARTAN
     Dosage: 2DF (HYDROCHLOROTHIAZIDE 25 MG, VALSARTAN 160 MG), QD
     Route: 048
  5. METFORMIN [Concomitant]
     Active Substance: METFORMIN HYDROCHLORIDE
     Indication: DIABETES MELLITUS
     Dosage: 2 DF (850 MG), QD 10 YEARS AGO
     Route: 048
  6. LASIX [Concomitant]
     Active Substance: FUROSEMIDE
     Indication: PRODUCT USED FOR UNKNOWN INDICATION
     Dosage: 1 DF, QD 5 MONTHS AGO
     Route: 048
  7. CO?DIOVAN [Suspect]
     Active Substance: HYDROCHLOROTHIAZIDE\VALSARTAN
     Indication: HYPERTENSION
     Dosage: 1 DF (HYDROCHLOROTHIAZIDE 25 MG, VALSARTAN 160 MG), QD
     Route: 048

REACTIONS (4)
  - Swelling [Recovered/Resolved]
  - Incorrect dose administered [Unknown]
  - Drug prescribing error [Unknown]
  - Influenza [Recovered/Resolved]

NARRATIVE: CASE EVENT DATE: 20180112
